FAERS Safety Report 16329246 (Version 1)
Quarter: 2019Q2

REPORT INFORMATION
  Report Type: Spontaneous
  Country: US (occurrence: US)
  Receive Date: 20190520
  Receipt Date: 20190520
  Transmission Date: 20190711
  Serious: No
  Sender: FDA-Public Use
  Company Number: US-BION-007435

PATIENT
  Sex: Male
  Weight: 77.11 kg

DRUGS (1)
  1. MOTRIN IB [Suspect]
     Active Substance: IBUPROFEN
     Indication: EAR PAIN
     Dosage: 2 MOTRIN LIQUID GELS
     Route: 048

REACTIONS (2)
  - Product use in unapproved indication [Not Recovered/Not Resolved]
  - Therapeutic product effect incomplete [Not Recovered/Not Resolved]
